FAERS Safety Report 4713233-1 (Version None)
Quarter: 2005Q3

REPORT INFORMATION
  Report Type: 
  Country: None (occurrence: None)
  Receive Date: 20050701
  Receipt Date: 20041102
  Transmission Date: 20060218
  Serious: Yes (Hospitalization)
  Sender: FDA-Public Use
  Company Number: USA-2002-007238

PATIENT
  Age: 42 Year
  Sex: Female
  Weight: 74.8 kg

DRUGS (1)
  1. YASMIN [Suspect]
     Indication: MENORRHAGIA
     Dosage: 1 TAB, 1X/DAY, ORAL
     Route: 048
     Dates: start: 20020528, end: 20021021

REACTIONS (2)
  - BACK PAIN [None]
  - DEEP VEIN THROMBOSIS [None]
